FAERS Safety Report 17710207 (Version 3)
Quarter: 2020Q4

REPORT INFORMATION
  Report Type: Spontaneous
  Country: US (occurrence: US)
  Receive Date: 20200427
  Receipt Date: 20201230
  Transmission Date: 20210113
  Serious: No
  Sender: FDA-Public Use
  Company Number: US-SA-2020SA058490

PATIENT

DRUGS (21)
  1. TACROLIMUS. [Concomitant]
     Active Substance: TACROLIMUS
  2. CEFDINIR. [Concomitant]
     Active Substance: CEFDINIR
  3. VITAMIN D NOS [Concomitant]
     Active Substance: VITAMIN D NOS
  4. BENZONATATE. [Concomitant]
     Active Substance: BENZONATATE
  5. FEXOFENADINE [Concomitant]
     Active Substance: FEXOFENADINE HYDROCHLORIDE
  6. PREGABALIN. [Concomitant]
     Active Substance: PREGABALIN
  7. DUPIXENT [Suspect]
     Active Substance: DUPILUMAB
     Indication: DERMATITIS ATOPIC
     Dosage: 600 MG, 1X
     Route: 058
     Dates: start: 20191231, end: 20191231
  8. PROAIR [FLUTICASONE PROPIONATE] [Concomitant]
     Active Substance: FLUTICASONE PROPIONATE
  9. DESONIDE. [Concomitant]
     Active Substance: DESONIDE
  10. ASPIRIN 81 [Concomitant]
     Active Substance: ASPIRIN
  11. XARELTO [Concomitant]
     Active Substance: RIVAROXABAN
  12. PREDNISONE. [Concomitant]
     Active Substance: PREDNISONE
  13. CLOBETASOL [Concomitant]
     Active Substance: CLOBETASOL
  14. PHENAZOPYRIDINE. [Concomitant]
     Active Substance: PHENAZOPYRIDINE
  15. SYMBICORT [Concomitant]
     Active Substance: BUDESONIDE\FORMOTEROL FUMARATE DIHYDRATE
  16. MONTELUCAST [Concomitant]
     Active Substance: MONTELUKAST SODIUM
  17. FUROSEMIDE. [Concomitant]
     Active Substance: FUROSEMIDE
  18. PANTOPRAZOLE [Concomitant]
     Active Substance: PANTOPRAZOLE
  19. DUPIXENT [Suspect]
     Active Substance: DUPILUMAB
     Indication: PSORIASIS
     Dosage: 300 MG, QOW
     Route: 058
     Dates: start: 2020
  20. TRIAMCINOLONE [Concomitant]
     Active Substance: TRIAMCINOLONE
  21. FLUCONAZOLE. [Concomitant]
     Active Substance: FLUCONAZOLE

REACTIONS (6)
  - Injection site bruising [Not Recovered/Not Resolved]
  - Pyrexia [Not Recovered/Not Resolved]
  - Rash pruritic [Not Recovered/Not Resolved]
  - Injection site pruritus [Not Recovered/Not Resolved]
  - Erythema [Not Recovered/Not Resolved]
  - Off label use [Unknown]

NARRATIVE: CASE EVENT DATE: 20191231
